FAERS Safety Report 4629120-3 (Version None)
Quarter: 2005Q2

REPORT INFORMATION
  Report Type: 
  Country: None (occurrence: None)
  Receive Date: 20050404
  Receipt Date: 20050404
  Transmission Date: 20051028
  Serious: Yes (Hospitalization)
  Sender: FDA-Public Use
  Company Number: None

PATIENT
  Age: 65 Year
  Sex: Male
  Weight: 64 kg

DRUGS (4)
  1. CELEBREX [Suspect]
     Indication: NON-SMALL CELL LUNG CANCER
     Dosage: 400MG PO BID
     Route: 048
     Dates: start: 20050114
  2. ASPIRIN [Concomitant]
  3. HYDROMORPH CONTIN [Concomitant]
  4. DILAUDID [Concomitant]

REACTIONS (5)
  - COGNITIVE DISORDER [None]
  - DELIRIUM [None]
  - OEDEMA PERIPHERAL [None]
  - PAIN [None]
  - TREATMENT NONCOMPLIANCE [None]
